FAERS Safety Report 16179195 (Version 1)
Quarter: 2019Q2

REPORT INFORMATION
  Report Type: Spontaneous
  Country: US (occurrence: US)
  Receive Date: 20190410
  Receipt Date: 20190410
  Transmission Date: 20190711
  Serious: No
  Sender: FDA-Public Use
  Company Number: US-PROVELL PHARMACEUTICALS-2065648

PATIENT
  Sex: Female

DRUGS (10)
  1. TOUJEO [Suspect]
     Active Substance: INSULIN GLARGINE
  2. EUTHYROX [Suspect]
     Active Substance: LEVOTHYROXINE SODIUM
     Indication: PRODUCT USED FOR UNKNOWN INDICATION
  3. PROTONIX [Suspect]
     Active Substance: PANTOPRAZOLE SODIUM
  4. JARDIANCE [Suspect]
     Active Substance: EMPAGLIFLOZIN
  5. PRAVASTATIN. [Suspect]
     Active Substance: PRAVASTATIN
  6. HYZAAR [Suspect]
     Active Substance: HYDROCHLOROTHIAZIDE\LOSARTAN POTASSIUM
  7. ACTOS [Suspect]
     Active Substance: PIOGLITAZONE HYDROCHLORIDE
  8. METFORMIN [Suspect]
     Active Substance: METFORMIN HYDROCHLORIDE
  9. PANTOZOL [Suspect]
     Active Substance: PANTOPRAZOLE SODIUM
  10. PLAVIX [Suspect]
     Active Substance: CLOPIDOGREL BISULFATE

REACTIONS (1)
  - Rash pruritic [Unknown]

NARRATIVE: CASE EVENT DATE: 2016
